FAERS Safety Report 21224008 (Version 1)
Quarter: 2022Q3

REPORT INFORMATION
  Report Type: Spontaneous
  Country: US (occurrence: None)
  Receive Date: 20220817
  Receipt Date: 20220817
  Transmission Date: 20221027
  Serious: Yes (Disabling)
  Sender: FDA-Public Use
  Company Number: None

PATIENT
  Age: 62 Year
  Sex: Female
  Weight: 71.55 kg

DRUGS (7)
  1. REPATHA [Suspect]
     Active Substance: EVOLOCUMAB
     Indication: Blood cholesterol increased
     Dosage: OTHER QUANTITY : 2 140;?OTHER FREQUENCY : 14 DAYS;?
     Dates: start: 20220805, end: 20220805
  2. TOPAMAX [Concomitant]
     Active Substance: TOPIRAMATE
  3. SEROQUEL [Concomitant]
     Active Substance: QUETIAPINE FUMARATE
  4. AMLODIPINE BESYLATE [Concomitant]
     Active Substance: AMLODIPINE BESYLATE
  5. C [Concomitant]
  6. D [Concomitant]
  7. E [Concomitant]

REACTIONS (7)
  - Myalgia [None]
  - Bone pain [None]
  - Arthralgia [None]
  - Gait disturbance [None]
  - Joint swelling [None]
  - Calcinosis [None]
  - Rotator cuff syndrome [None]

NARRATIVE: CASE EVENT DATE: 20220812
